FAERS Safety Report 8803178 (Version 1)
Quarter: 2012Q4

REPORT INFORMATION
  Report Type: 
  Country: CA (occurrence: CA)
  Receive Date: 20120924
  Receipt Date: 20120924
  Transmission Date: 20130627
  Serious: Yes (Hospitalization)
  Sender: FDA-Public Use
  Company Number: PHHY2012CA082355

PATIENT
  Sex: Female

DRUGS (2)
  1. ACLASTA [Suspect]
     Indication: OSTEOPOROSIS
     Route: 042
     Dates: start: 20100821
  2. ACLASTA [Suspect]
     Route: 042
     Dates: start: 20110916

REACTIONS (2)
  - Fall [Unknown]
  - Pelvic fracture [Unknown]
